FAERS Safety Report 5411614-4 (Version None)
Quarter: 2007Q3

REPORT INFORMATION
  Report Type: 
  Country: None (occurrence: None)
  Receive Date: 20070810
  Receipt Date: 20070702
  Transmission Date: 20080115
  Serious: Yes (Hospitalization, Disabling, Other)
  Sender: FDA-Public Use
  Company Number: US-ELI_LILLY_AND_COMPANY-US200707000566

PATIENT
  Age: 18 Year
  Sex: Female
  Weight: 54.376 kg

DRUGS (6)
  1. PROZAC [Suspect]
     Dosage: 40 MG, UNK
  2. WELLBUTRIN XL [Concomitant]
     Indication: DEPRESSION
     Dosage: 450 MG, DAILY (1/D)
     Dates: start: 20070415, end: 20070618
  3. FOLIC ACID [Concomitant]
  4. ASACOL [Concomitant]
  5. BACTRIM [Concomitant]
  6. MERCAPTOPURINE [Concomitant]

REACTIONS (5)
  - CONVULSION [None]
  - DRUG INTERACTION [None]
  - ELECTROENCEPHALOGRAM ABNORMAL [None]
  - POSTICTAL STATE [None]
  - TREMOR [None]
